FAERS Safety Report 25689479 (Version 1)
Quarter: 2025Q3

REPORT INFORMATION
  Report Type: Report from Study
  Country: US (occurrence: US)
  Receive Date: 20250818
  Receipt Date: 20250818
  Transmission Date: 20251020
  Serious: Yes (Other)
  Sender: TAKEDA
  Company Number: US-TAKEDA-2025TUS061224

PATIENT
  Sex: Male

DRUGS (18)
  1. FRUQUINTINIB [Suspect]
     Active Substance: FRUQUINTINIB
     Indication: Colon cancer
  2. ASPIRIN [Concomitant]
     Active Substance: ASPIRIN
  3. ATENOLOL [Concomitant]
     Active Substance: ATENOLOL
  4. CALCITRIOL [Concomitant]
     Active Substance: CALCITRIOL
  5. FINASTERIDE [Concomitant]
     Active Substance: FINASTERIDE
  6. FUROSEMIDE [Concomitant]
     Active Substance: FUROSEMIDE
  7. GEMTESA [Concomitant]
     Active Substance: VIBEGRON
  8. HYDRALAZINE HCL [Concomitant]
     Active Substance: HYDRALAZINE HYDROCHLORIDE
  9. NITROGLYCERIN [Concomitant]
     Active Substance: NITROGLYCERIN
  10. PANTOPRAZOLE SODIUM [Concomitant]
     Active Substance: PANTOPRAZOLE SODIUM
  11. PREGABALIN [Concomitant]
     Active Substance: PREGABALIN
  12. ROSUVASTATIN CALCIUM [Concomitant]
     Active Substance: ROSUVASTATIN CALCIUM
  13. COENZYME Q10 [Concomitant]
     Active Substance: DIETARY SUPPLEMENT\UBIDECARENONE
  14. TAMSULOSIN HYDROCHLORIDE [Concomitant]
     Active Substance: TAMSULOSIN HYDROCHLORIDE
  15. TELMISARTAN [Concomitant]
     Active Substance: TELMISARTAN
  16. TEMAZEPAM [Concomitant]
     Active Substance: TEMAZEPAM
  17. VITAMIN C [Concomitant]
     Active Substance: ASCORBIC ACID
  18. AMLODIPINE BESYLATE [Concomitant]
     Active Substance: AMLODIPINE BESYLATE

REACTIONS (8)
  - Deep vein thrombosis [Unknown]
  - Balance disorder [Not Recovered/Not Resolved]
  - Tumour pain [Not Recovered/Not Resolved]
  - Haematuria [Recovered/Resolved]
  - Blood pressure abnormal [Unknown]
  - Diarrhoea [Unknown]
  - Blood pressure increased [Not Recovered/Not Resolved]
  - Palmar-plantar erythrodysaesthesia syndrome [Unknown]
